FAERS Safety Report 11233494 (Version 1)
Quarter: 2015Q3

REPORT INFORMATION
  Report Type: Report from Study
  Country: US (occurrence: US)
  Receive Date: 20150702
  Receipt Date: 20150702
  Transmission Date: 20151125
  Serious: Yes (Death, Hospitalization)
  Sender: FDA-Public Use
  Company Number: US-009507513-1506USA014278

PATIENT
  Age: 68 Year
  Sex: Female

DRUGS (12)
  1. K-DUR [Concomitant]
     Active Substance: POTASSIUM CHLORIDE
  2. CYANOCOBALAMIN. [Concomitant]
     Active Substance: CYANOCOBALAMIN
  3. ZOCOR [Suspect]
     Active Substance: SIMVASTATIN
     Indication: LIPIDS INCREASED
     Route: 048
  4. EVOLOCUMAB [Suspect]
     Active Substance: EVOLOCUMAB
     Indication: LIPIDS INCREASED
     Dosage: 420 MG, QM
     Dates: start: 201202
  5. IBUPROFEN. [Concomitant]
     Active Substance: IBUPROFEN
  6. FUROSEMIDE. [Concomitant]
     Active Substance: FUROSEMIDE
  7. ESTRADIOL. [Concomitant]
     Active Substance: ESTRADIOL
  8. MOMETASONE FUROATE. [Concomitant]
     Active Substance: MOMETASONE FUROATE
  9. ETODOLAC. [Concomitant]
     Active Substance: ETODOLAC
  10. AMLODIPINE [Concomitant]
     Active Substance: AMLODIPINE BESYLATE
  11. METHIMAZOLE. [Concomitant]
     Active Substance: METHIMAZOLE
  12. NEBIVOLOL. [Concomitant]
     Active Substance: NEBIVOLOL

REACTIONS (1)
  - Peripheral ischaemia [Fatal]
